FAERS Safety Report 10051458 (Version 2)
Quarter: 2014Q2

REPORT INFORMATION
  Report Type: Report from Study
  Country: US (occurrence: US)
  Receive Date: 20140401
  Receipt Date: 20140606
  Transmission Date: 20141212
  Serious: Yes (Death)
  Sender: FDA-Public Use
  Company Number: US-PFIZER INC-2014087785

PATIENT
  Age: 53 Year
  Sex: Male
  Weight: 97.3 kg

DRUGS (1)
  1. BOSUTINIB [Suspect]
     Indication: CHRONIC MYELOID LEUKAEMIA
     Dosage: TABLETS; 400 MG, 1X/DAY
     Route: 048
     Dates: start: 20070426

REACTIONS (1)
  - Death [Fatal]
